FAERS Safety Report 26199155 (Version 1)
Quarter: 2025Q4

REPORT INFORMATION
  Report Type: Report from Study
  Country: ZA (occurrence: ZA)
  Receive Date: 20251225
  Receipt Date: 20251225
  Transmission Date: 20260118
  Serious: Yes (Other)
  Sender: ROCHE
  Company Number: ZA-ROCHE-10000064081

PATIENT
  Age: 68 Year
  Sex: Male

DRUGS (2)
  1. VABYSMO [Suspect]
     Active Substance: FARICIMAB-SVOA
     Indication: Macular degeneration
     Dosage: 2ND INJ - 12 JUNE 2024?3RD INJ - 11 JULY 2024?4TH INJ - 12 SEPTEMBER 2024
     Dates: start: 20240516
  2. VABYSMO [Suspect]
     Active Substance: FARICIMAB-SVOA
     Indication: Macular degeneration

REACTIONS (4)
  - Off label use [Unknown]
  - Optical coherence tomography abnormal [Unknown]
  - Retinal thickening [Unknown]
  - Visual acuity tests abnormal [Unknown]
